FAERS Safety Report 10906305 (Version 1)
Quarter: 2015Q1

REPORT INFORMATION
  Report Type: Spontaneous
  Country: ES (occurrence: ES)
  Receive Date: 20150311
  Receipt Date: 20150311
  Transmission Date: 20150721
  Serious: Yes (Death, Other)
  Sender: FDA-Public Use
  Company Number: PHHY2015ES027608

PATIENT
  Age: 63 Year
  Sex: Male

DRUGS (19)
  1. DOCETAXEL. [Concomitant]
     Active Substance: DOCETAXEL
     Indication: MALIGNANT NEOPLASM PROGRESSION
  2. CARBOPLATIN. [Suspect]
     Active Substance: CARBOPLATIN
     Indication: MALIGNANT NEOPLASM PROGRESSION
     Route: 065
     Dates: start: 200910
  3. ERLOTINIB [Concomitant]
     Active Substance: ERLOTINIB
     Dosage: 150 MG, QD
     Route: 065
     Dates: start: 200910
  4. ERLOTINIB [Concomitant]
     Active Substance: ERLOTINIB
     Dosage: 150 MG, QD
     Route: 065
  5. PREDNISONE. [Concomitant]
     Active Substance: PREDNISONE
     Indication: LUNG ADENOCARCINOMA METASTATIC
     Dosage: 5 MG, QD
     Route: 065
  6. PREDNISONE. [Concomitant]
     Active Substance: PREDNISONE
     Indication: MALIGNANT NEOPLASM PROGRESSION
     Dosage: 5 MG, QD
     Route: 065
     Dates: start: 200910
  7. DOCETAXEL. [Concomitant]
     Active Substance: DOCETAXEL
     Indication: LUNG ADENOCARCINOMA METASTATIC
     Dosage: 75 MG/M2, UNK
     Dates: start: 200910
  8. ERLOTINIB [Concomitant]
     Active Substance: ERLOTINIB
     Dosage: 150 MG, QD
     Route: 065
  9. METHYLPREDNISOLONE. [Concomitant]
     Active Substance: METHYLPREDNISOLONE
     Indication: PRODUCT USED FOR UNKNOWN INDICATION
     Dosage: 125 MG, Q12H
     Route: 065
  10. BEVACIZUMAB [Concomitant]
     Active Substance: BEVACIZUMAB
     Indication: PRODUCT USED FOR UNKNOWN INDICATION
     Dosage: 7.5 MG/KG, QD
     Route: 065
  11. CISPLATIN. [Suspect]
     Active Substance: CISPLATIN
     Indication: LUNG ADENOCARCINOMA METASTATIC
     Dosage: 75 MG/M2, UNK
     Route: 065
  12. VINORELBINE [Suspect]
     Active Substance: VINORELBINE\VINORELBINE TARTRATE
     Indication: LUNG ADENOCARCINOMA METASTATIC
     Dosage: 25 MG/M2, UNK
     Route: 065
  13. CARBOPLATIN. [Suspect]
     Active Substance: CARBOPLATIN
     Indication: LUNG ADENOCARCINOMA METASTATIC
     Route: 065
  14. PEMETREXED [Suspect]
     Active Substance: PEMETREXED
     Indication: LUNG ADENOCARCINOMA METASTATIC
     Dosage: 500 MG/M2, UNK
     Route: 065
  15. ERLOTINIB [Concomitant]
     Active Substance: ERLOTINIB
     Indication: LUNG ADENOCARCINOMA METASTATIC
     Dosage: 50 MG, QD
     Route: 065
  16. ERLOTINIB [Concomitant]
     Active Substance: ERLOTINIB
     Dosage: 100 MG, QD
     Route: 065
  17. VORINOSTAT [Concomitant]
     Active Substance: VORINOSTAT
     Indication: MALIGNANT NEOPLASM PROGRESSION
     Dosage: 400 MG, QD
     Route: 065
  18. VORINOSTAT [Concomitant]
     Active Substance: VORINOSTAT
     Indication: LUNG ADENOCARCINOMA METASTATIC
  19. OXYGEN THERAPY [Concomitant]
     Active Substance: OXYGEN
     Indication: PRODUCT USED FOR UNKNOWN INDICATION
     Route: 065

REACTIONS (6)
  - Death [Fatal]
  - Malignant neoplasm progression [Unknown]
  - Asthenia [Unknown]
  - General physical health deterioration [Unknown]
  - Lung adenocarcinoma metastatic [Unknown]
  - Renal impairment [Unknown]

NARRATIVE: CASE EVENT DATE: 201008
